FAERS Safety Report 10086052 (Version 1)
Quarter: 2014Q2

REPORT INFORMATION
  Report Type: Spontaneous
  Country: DE (occurrence: DE)
  Receive Date: 20140418
  Receipt Date: 20140418
  Transmission Date: 20141212
  Serious: Yes (Other)
  Sender: FDA-Public Use
  Company Number: PHHY2014DE046850

PATIENT
  Sex: Female

DRUGS (1)
  1. PROVAS [Suspect]
     Dosage: UNK UKN, UNK
     Dates: start: 2002

REACTIONS (2)
  - Cardiomyopathy [Unknown]
  - Drug ineffective [Unknown]
